FAERS Safety Report 9921355 (Version 1)
Quarter: 2014Q1

REPORT INFORMATION
  Report Type: Spontaneous
  Country: US (occurrence: US)
  Receive Date: 20140225
  Receipt Date: 20140225
  Transmission Date: 20141002
  Serious: Yes (Hospitalization)
  Sender: FDA-Public Use
  Company Number: US-TARO PHARMACEUTICALS U.S.A., INC-2014SUN00380

PATIENT
  Age: 78 Year
  Sex: Male

DRUGS (5)
  1. AMIODARONE [Suspect]
     Indication: ATRIAL FIBRILLATION
     Route: 065
  2. METOPROLOL [Concomitant]
  3. SIMVASTATIN [Concomitant]
  4. OMEPRAZOLE [Concomitant]
  5. TAMSULOSIN [Concomitant]

REACTIONS (1)
  - Myxoedema coma [Recovering/Resolving]
